FAERS Safety Report 10202056 (Version 1)
Quarter: 2014Q2

REPORT INFORMATION
  Report Type: Spontaneous
  Country: US (occurrence: US)
  Receive Date: 20140528
  Receipt Date: 20140528
  Transmission Date: 20141212
  Serious: Yes (Other)
  Sender: FDA-Public Use
  Company Number: US-GLAXOSMITHKLINE-A1074042A

PATIENT
  Age: 57 Year
  Sex: Female

DRUGS (2)
  1. VENTOLIN [Suspect]
     Indication: DYSPNOEA
     Route: 065
     Dates: start: 2012
  2. PROZAC [Concomitant]

REACTIONS (2)
  - Glaucoma [Not Recovered/Not Resolved]
  - Bronchitis [Recovered/Resolved]
